FAERS Safety Report 8810392 (Version 4)
Quarter: 2014Q2

REPORT INFORMATION
  Report Type: Spontaneous
  Country: CO (occurrence: CO)
  Receive Date: 20120926
  Receipt Date: 20130730
  Transmission Date: 20141212
  Serious: Yes (Other)
  Sender: FDA-Public Use
  Company Number: CO-MERCK-1208COL002858

PATIENT
  Age: 54 Year
  Sex: Male

DRUGS (2)
  1. PEG-INTRON [Suspect]
     Indication: HEPATITIS C
     Dosage: AMPULE
     Dates: start: 20120727
  2. REBETOL [Suspect]
     Indication: HEPATITIS C
     Dosage: UNK
     Dates: start: 20120727

REACTIONS (5)
  - Liver transplant [Recovered/Resolved]
  - Dysuria [Unknown]
  - Bladder spasm [Unknown]
  - Urinary tract infection [Unknown]
  - Haematuria [Unknown]
